FAERS Safety Report 9248806 (Version 1)
Quarter: 2013Q2

REPORT INFORMATION
  Report Type: Spontaneous
  Country: US (occurrence: None)
  Receive Date: 20130419
  Receipt Date: 20130419
  Transmission Date: 20140414
  Serious: No
  Sender: FDA-Public Use
  Company Number: None

PATIENT
  Age: 85 Year
  Sex: Female
  Weight: 70.31 kg

DRUGS (1)
  1. PROLIA INJECTION-AMGEN [Suspect]
     Dosage: EVERY 6 MONTHS
     Dates: start: 20121024

REACTIONS (3)
  - Back pain [None]
  - Pruritus [None]
  - Skin disorder [None]
